FAERS Safety Report 5869898-4 (Version None)
Quarter: 2008Q3

REPORT INFORMATION
  Report Type: 
  Country: None (occurrence: None)
  Receive Date: 20080904
  Receipt Date: 20080825
  Transmission Date: 20090109
  Serious: Yes (Hospitalization)
  Sender: FDA-Public Use
  Company Number: PHHO2008DE09584

PATIENT
  Sex: Male
  Weight: 79.3 kg

DRUGS (4)
  1. RAD 666 RAD+TAB [Suspect]
     Indication: RENAL TRANSPLANT
     Dosage: 1.5 MG, DAILY
     Dates: start: 20080801, end: 20080824
  2. MYFORTIC [Suspect]
     Dosage: UNK
     Dates: end: 20080824
  3. PREDNISOLON [Concomitant]
     Dosage: UNK
  4. PROGRAF [Concomitant]

REACTIONS (2)
  - PNEUMONIA [None]
  - PYREXIA [None]
